FAERS Safety Report 15334078 (Version 1)
Quarter: 2018Q3

REPORT INFORMATION
  Report Type: Spontaneous
  Country: US (occurrence: US)
  Receive Date: 20180826
  Receipt Date: 20180826
  Transmission Date: 20181010
  Serious: No
  Sender: FDA-Public Use
  Company Number: None

PATIENT
  Age: 20 Year
  Sex: Female
  Weight: 72.57 kg

DRUGS (1)
  1. NEXPLANON [Suspect]
     Active Substance: ETONOGESTREL
     Dates: start: 20180806

REACTIONS (9)
  - Fatigue [None]
  - Ill-defined disorder [None]
  - Malaise [None]
  - Oropharyngeal pain [None]
  - Conjunctivitis [None]
  - Aphonia [None]
  - Nasal congestion [None]
  - Odynophagia [None]
  - Pain [None]

NARRATIVE: CASE EVENT DATE: 20180816
